FAERS Safety Report 12364898 (Version 1)
Quarter: 2016Q2

REPORT INFORMATION
  Report Type: Report from Study
  Country: US (occurrence: US)
  Receive Date: 20160513
  Receipt Date: 20160513
  Transmission Date: 20160815
  Serious: Yes (Death, Hospitalization, Congenital Anomaly)
  Sender: FDA-Public Use
  Company Number: US-BIOGEN-2016BI00234105

PATIENT
  Age: 0 Day
  Sex: Female
  Weight: 2.72 kg

DRUGS (1)
  1. AVONEX [Suspect]
     Active Substance: INTERFERON BETA-1A
     Indication: MATERNAL EXPOSURE TIMING UNSPECIFIED
     Route: 064
     Dates: start: 1999

REACTIONS (4)
  - Cleft palate [Recovered/Resolved]
  - Congenital central nervous system anomaly [Fatal]
  - Congenital hydrocephalus [Recovered/Resolved]
  - Cleft lip [Recovered/Resolved]

NARRATIVE: CASE EVENT DATE: 20060412
